FAERS Safety Report 24701325 (Version 1)
Quarter: 2024Q4

REPORT INFORMATION
  Report Type: Spontaneous
  Country: FR (occurrence: FR)
  Receive Date: 20241205
  Receipt Date: 20241205
  Transmission Date: 20250115
  Serious: Yes (Hospitalization)
  Sender: SANDOZ
  Company Number: None

PATIENT
  Age: 66 Year
  Sex: Female

DRUGS (10)
  1. DIPRIVAN [Suspect]
     Active Substance: PROPOFOL
     Indication: Induction of anaesthesia
     Dosage: NR
     Route: 042
     Dates: start: 20241023, end: 20241023
  2. FLAGYL [Suspect]
     Active Substance: METRONIDAZOLE\METRONIDAZOLE HYDROCHLORIDE
     Indication: Induction of anaesthesia
     Dosage: NR
     Route: 042
     Dates: start: 20241023, end: 20241023
  3. KETOPROFEN [Suspect]
     Active Substance: KETOPROFEN
     Indication: Anaesthetic premedication
     Dosage: 100 MG
     Route: 048
     Dates: start: 20241023, end: 20241023
  4. KETAMINE [Suspect]
     Active Substance: KETAMINE
     Indication: Induction of anaesthesia
     Dosage: NR
     Route: 042
     Dates: start: 20241023, end: 20241023
  5. LIDOCAINE [Suspect]
     Active Substance: LIDOCAINE
     Indication: Induction of anaesthesia
     Dosage: NR
     Route: 042
     Dates: start: 20241023, end: 20241023
  6. PANTOPRAZOLE [Suspect]
     Active Substance: PANTOPRAZOLE
     Indication: Anaesthetic premedication
     Dosage: 20 MG
     Route: 048
     Dates: start: 20241023, end: 20241023
  7. ACETAMINOPHEN [Suspect]
     Active Substance: ACETAMINOPHEN
     Indication: Anaesthetic premedication
     Dosage: 1 G,1 H
     Route: 048
     Dates: start: 20241023, end: 20241023
  8. SUFENTANIL [Suspect]
     Active Substance: SUFENTANIL
     Indication: Induction of anaesthesia
     Dosage: NR
     Route: 042
     Dates: start: 20241023, end: 20241023
  9. TRACRIUM [Suspect]
     Active Substance: ATRACURIUM BESYLATE
     Indication: Induction of anaesthesia
     Dosage: NR
     Route: 042
     Dates: start: 20241023, end: 20241023
  10. ALBUTEROL [Suspect]
     Active Substance: ALBUTEROL
     Indication: Anaesthetic premedication
     Dosage: 2 DF
     Route: 048
     Dates: start: 20241023, end: 20241023

REACTIONS (3)
  - Hypotension [Recovered/Resolved]
  - Procedure aborted [Unknown]
  - Rash [Recovered/Resolved]

NARRATIVE: CASE EVENT DATE: 20241023
